FAERS Safety Report 9059423 (Version 1)
Quarter: 2013Q1

REPORT INFORMATION
  Report Type: Spontaneous
  Country: US (occurrence: US)
  Receive Date: 20130211
  Receipt Date: 20130211
  Transmission Date: 20140127
  Serious: Yes (Hospitalization)
  Sender: FDA-Public Use
  Company Number: US-B.I. PHARMACEUTICALS,INC./RIDGEFIELD-2013-BI-03448BP

PATIENT
  Age: 70 None
  Sex: Female
  Weight: 46 kg

DRUGS (2)
  1. SPIRIVA [Suspect]
     Indication: CHRONIC OBSTRUCTIVE PULMONARY DISEASE
     Dosage: 18 MCG
     Route: 055
     Dates: start: 2008
  2. SPIRIVA [Suspect]
     Route: 048
     Dates: start: 20130205, end: 20130205

REACTIONS (5)
  - Throat cancer [Recovered/Resolved]
  - Lung neoplasm malignant [Recovered/Resolved]
  - Small cell lung cancer [Recovered/Resolved]
  - Incorrect route of drug administration [Recovered/Resolved]
  - Product quality issue [Unknown]
